FAERS Safety Report 7081396-1 (Version None)
Quarter: 2010Q4

REPORT INFORMATION
  Report Type: 
  Country: None (occurrence: None)
  Receive Date: 20101103
  Receipt Date: 20101029
  Transmission Date: 20110411
  Serious: Yes (Death, Life-Threatening, Other)
  Sender: FDA-Public Use
  Company Number: PHHY2010JP68871

PATIENT
  Age: 21 Year
  Sex: Female
  Weight: 37 kg

DRUGS (4)
  1. SIMULECT [Suspect]
     Indication: LIVER TRANSPLANT
     Dosage: 20 MG
     Route: 042
     Dates: start: 20061024, end: 20061024
  2. SIMULECT [Suspect]
     Dosage: 20 MG
     Route: 042
     Dates: start: 20061028, end: 20061028
  3. CELLCEPT [Concomitant]
     Indication: LIVER TRANSPLANT
     Route: 048
  4. CORTICOSTEROIDS [Concomitant]
     Indication: LIVER TRANSPLANT

REACTIONS (22)
  - BLOOD PRESSURE DECREASED [None]
  - CEREBRAL VENTRICLE DILATATION [None]
  - CONDITION AGGRAVATED [None]
  - CONVULSION [None]
  - CRANIOTOMY [None]
  - DIALYSIS [None]
  - HEPATIC FUNCTION ABNORMAL [None]
  - HYDROCEPHALUS [None]
  - INTRACRANIAL HYPOTENSION [None]
  - INTRAVENTRICULAR HAEMORRHAGE [None]
  - LIVER TRANSPLANT REJECTION [None]
  - LUNG DISORDER [None]
  - MECHANICAL VENTILATION [None]
  - PNEUMOTHORAX [None]
  - PYREXIA [None]
  - RENAL IMPAIRMENT [None]
  - RESPIRATORY FAILURE [None]
  - SEPSIS [None]
  - SUBDURAL HAEMATOMA [None]
  - SUBDURAL HAEMATOMA EVACUATION [None]
  - TRACHEOSTOMY [None]
  - VENTRICULAR DRAINAGE [None]
